FAERS Safety Report 8295613-3 (Version None)
Quarter: 2012Q2

REPORT INFORMATION
  Report Type: 
  Country: None (occurrence: None)
  Receive Date: 20120416
  Receipt Date: 20120401
  Transmission Date: 20120825
  Serious: Yes (Death)
  Sender: FDA-Public Use
  Company Number: 2012-168

PATIENT
  Age: 76 Year
  Sex: Female

DRUGS (1)
  1. CLOZAPINE [Suspect]
     Indication: SCHIZOPHRENIA
     Dosage: 300-450 MG, QD, ORAL
     Route: 048

REACTIONS (4)
  - LYMPHOMA [None]
  - NEUTROPENIA [None]
  - PSYCHOTIC DISORDER [None]
  - CONDITION AGGRAVATED [None]
